FAERS Safety Report 7715152-5 (Version None)
Quarter: 2011Q3

REPORT INFORMATION
  Report Type: 
  Country: None (occurrence: None)
  Receive Date: 20110829
  Receipt Date: 20110822
  Transmission Date: 20111222
  Serious: Yes (Hospitalization)
  Sender: FDA-Public Use
  Company Number: US-BRISTOL-MYERS SQUIBB COMPANY-15990898

PATIENT
  Age: 36 Year
  Sex: Male

DRUGS (3)
  1. METFORMIN HCL [Suspect]
     Route: 048
  2. GLUCOVANCE [Suspect]
  3. INSULIN [Concomitant]

REACTIONS (2)
  - PANCREATITIS [None]
  - LACTIC ACIDOSIS [None]
